FAERS Safety Report 6439130-1 (Version None)
Quarter: 2009Q4

REPORT INFORMATION
  Report Type: 
  Country: None (occurrence: None)
  Receive Date: 20091112
  Receipt Date: 20080522
  Transmission Date: 20100525
  Serious: Yes (Other)
  Sender: FDA-Public Use
  Company Number: 2008BH004370

PATIENT
  Age: 57 Year
  Sex: Male
  Weight: 61.6892 kg

DRUGS (14)
  1. GAMMAGARD LIQUID [Suspect]
     Indication: ALPHA-1 ANTI-TRYPSIN DEFICIENCY
     Dosage: 12 GM EVERY MO IV
     Route: 042
     Dates: start: 20080423, end: 20080423
  2. GAMMAGARD LIQUID [Suspect]
     Indication: OFF LABEL USE
     Dosage: 12 GM EVERY MO IV
     Route: 042
     Dates: start: 20080423, end: 20080423
  3. GAMMAGARD LIQUID [Suspect]
     Indication: ALPHA-1 ANTI-TRYPSIN DEFICIENCY
     Dosage: 12 GM EVERY MO IV
     Route: 042
     Dates: start: 20070730
  4. GAMMAGARD LIQUID [Suspect]
     Indication: OFF LABEL USE
     Dosage: 12 GM EVERY MO IV
     Route: 042
     Dates: start: 20070730
  5. NORMAL SALINE [Concomitant]
  6. TYLENOL (CAPLET) [Concomitant]
  7. BENADRYL [Concomitant]
  8. BACTRIM [Concomitant]
  9. AMBIEN [Concomitant]
  10. CELLCEPT [Concomitant]
  11. PREDNISONE [Concomitant]
  12. VFEND [Concomitant]
  13. NEORAL [Concomitant]
  14. DAILY MULTIVITAMIN [Concomitant]

REACTIONS (4)
  - CHILLS [None]
  - MALAISE [None]
  - NAUSEA [None]
  - PYREXIA [None]
